FAERS Safety Report 8844326 (Version 2)
Quarter: 2012Q4

REPORT INFORMATION
  Report Type: 
  Country: JP (occurrence: JP)
  Receive Date: 20121017
  Receipt Date: 20121113
  Transmission Date: 20130627
  Serious: Yes (Death, Disabling)
  Sender: FDA-Public Use
  Company Number: JP-009507513-1210JPN006394

PATIENT
  Age: 80 Year
  Sex: Female
  Weight: 36 kg

DRUGS (6)
  1. FOSAMAC TABLETS 35MG [Suspect]
     Indication: OSTEOPOROSIS
     Dosage: 35 mg, qw
     Route: 048
  2. PREDONINE [Concomitant]
     Indication: RHEUMATOID ARTHRITIS
     Dosage: 5 mg, qd
     Route: 048
  3. RHEUMATREX [Concomitant]
     Indication: RHEUMATOID ARTHRITIS
     Route: 048
  4. PREDNISOLONE [Concomitant]
     Indication: RHEUMATOID ARTHRITIS
     Route: 048
  5. BLOPRESS [Concomitant]
     Indication: HYPERTENSION
     Dosage: 2 mg, qd
     Route: 048
  6. WARFARIN [Concomitant]
     Indication: THROMBOANGIITIS OBLITERANS
     Dosage: 1 mg, qd
     Route: 048

REACTIONS (4)
  - Sepsis [Fatal]
  - Osteonecrosis of jaw [Not Recovered/Not Resolved]
  - Osteomyelitis [Not Recovered/Not Resolved]
  - Pneumonia [Unknown]
